FAERS Safety Report 4975496-7 (Version None)
Quarter: 2006Q2

REPORT INFORMATION
  Report Type: 
  Country: None (occurrence: None)
  Receive Date: 20060410
  Receipt Date: 20060323
  Transmission Date: 20061013
  Serious: Yes (Hospitalization)
  Sender: FDA-Public Use
  Company Number: DSA_27926_2006

PATIENT
  Age: 69 Year
  Sex: Female
  Weight: 50 kg

DRUGS (7)
  1. DILTIAZEM HCL SUSTAINED RELEASE TABLETS [Suspect]
     Indication: HYPERTENSION
     Dosage: 90 MG QAM PO
     Route: 048
     Dates: start: 20060210, end: 20060215
  2. INTEGRILIN [Suspect]
     Indication: ACUTE CORONARY SYNDROME
     Dosage: 8 ML Q1HR PU
     Dates: start: 20060209, end: 20060211
  3. INTEGRILIN [Suspect]
     Indication: ACUTE CORONARY SYNDROME
     Dosage: 2 DF IV
     Route: 042
     Dates: start: 20060209, end: 20060201
  4. VYTORIN [Suspect]
     Indication: HYPERLIPIDAEMIA
     Dosage: 1 DF Q DAY PO
     Route: 048
     Dates: start: 20060210, end: 20060214
  5. LASIX /00032601/ [Concomitant]
  6. ASPIRIN [Concomitant]
  7. PLAVIX /01220701/ [Concomitant]

REACTIONS (12)
  - ARTERIAL STENT INSERTION [None]
  - BLOOD GLUCOSE INCREASED [None]
  - BLOOD POTASSIUM DECREASED [None]
  - DIZZINESS [None]
  - HAEMATOCRIT DECREASED [None]
  - NAUSEA [None]
  - NEUTROPHIL COUNT INCREASED [None]
  - PALPITATIONS [None]
  - RED BLOOD CELL COUNT DECREASED [None]
  - TINNITUS [None]
  - VERTIGO [None]
  - VESTIBULAR NEURONITIS [None]
